FAERS Safety Report 6144777-6 (Version None)
Quarter: 2009Q2

REPORT INFORMATION
  Report Type: 
  Country: None (occurrence: None)
  Receive Date: 20090402
  Receipt Date: 20081222
  Transmission Date: 20091009
  Serious: No
  Sender: FDA-Public Use
  Company Number: 1000004644

PATIENT
  Age: 48 Year
  Sex: Male
  Weight: 100.7 kg

DRUGS (3)
  1. BYSTOLIC [Suspect]
     Indication: BLOOD PRESSURE
     Dosage: 5 MG (5 MG, 1  IN 1 D),ORAL
     Route: 048
     Dates: start: 20080914
  2. BENICAR [Concomitant]
  3. LEXAPRO [Concomitant]

REACTIONS (2)
  - HYPOAESTHESIA [None]
  - HYPOAESTHESIA FACIAL [None]
